FAERS Safety Report 14421827 (Version 2)
Quarter: 2018Q1

REPORT INFORMATION
  Report Type: Report from Study
  Country: None (occurrence: DE)
  Receive Date: 20180122
  Receipt Date: 20180305
  Transmission Date: 20180509
  Serious: Yes (Death, Disabling, Other)
  Sender: FDA-Public Use
  Company Number: DE-ABBVIE-18K-062-2231390-00

PATIENT
  Age: 68 Year
  Sex: Female

DRUGS (1)
  1. DUODOPA [Suspect]
     Active Substance: CARBIDOPA\LEVODOPA
     Indication: PARKINSON^S DISEASE
     Dosage: MD 1.5 ML, CRD 2.6 ML/H, CRN 2.6 ML/H, ED 1.5 ML
     Route: 050
     Dates: start: 20090526

REACTIONS (5)
  - Melanoma recurrent [Fatal]
  - Neoplasm malignant [Unknown]
  - Decubitus ulcer [Unknown]
  - Malignant melanoma [Fatal]
  - General physical health deterioration [Fatal]

NARRATIVE: CASE EVENT DATE: 20160607
